FAERS Safety Report 5030422-X (Version None)
Quarter: 2006Q2

REPORT INFORMATION
  Report Type: 
  Country: None (occurrence: None)
  Receive Date: 20060620
  Receipt Date: 20060613
  Transmission Date: 20061013
  Serious: Yes (Death)
  Sender: FDA-Public Use
  Company Number: US-BRISTOL-MYERS SQUIBB COMPANY-13410105

PATIENT
  Age: 51 Year
  Sex: Female

DRUGS (5)
  1. MEGACE [Suspect]
  2. SYNTHROID [Concomitant]
  3. VALTREX [Concomitant]
  4. COUMADIN [Concomitant]
  5. ACCUPRIL [Concomitant]

REACTIONS (1)
  - DEATH [None]
